FAERS Safety Report 7406690-3 (Version None)
Quarter: 2011Q2

REPORT INFORMATION
  Report Type: 
  Country: None (occurrence: None)
  Receive Date: 20110411
  Receipt Date: 20110404
  Transmission Date: 20111010
  Serious: Yes (Hospitalization)
  Sender: FDA-Public Use
  Company Number: JP-PFIZER INC-2011073459

PATIENT
  Age: 75 Year
  Sex: Male

DRUGS (6)
  1. LASIX [Concomitant]
     Route: 048
  2. BLOPRESS [Concomitant]
     Route: 048
  3. DIGOSIN [Concomitant]
     Route: 048
  4. ALDACTONE [Concomitant]
     Route: 048
  5. ZYVOX [Suspect]
     Indication: PNEUMONIA STAPHYLOCOCCAL
     Dosage: 1200 MG, 1X/DAY
     Route: 048
     Dates: start: 20110319, end: 20110325
  6. GASTER [Concomitant]
     Route: 048

REACTIONS (2)
  - PANCYTOPENIA [None]
  - RENAL FAILURE ACUTE [None]
